FAERS Safety Report 9843724 (Version 1)
Quarter: 2014Q1

REPORT INFORMATION
  Report Type: Spontaneous
  Country: PL (occurrence: PL)
  Receive Date: 20140126
  Receipt Date: 20140126
  Transmission Date: 20141002
  Serious: Yes (Life-Threatening)
  Sender: FDA-Public Use
  Company Number: PL-MERCK-1401POL010153

PATIENT
  Age: 78 Year
  Sex: 0

DRUGS (6)
  1. MIRTAZAPINE [Suspect]
     Indication: MAJOR DEPRESSION
     Dosage: 45 MG/DAY
  2. CLOMIPRAMINE HYDROCHLORIDE [Suspect]
     Indication: MAJOR DEPRESSION
     Dosage: 225 MG/DAY
  3. OLANZAPINE [Suspect]
     Indication: MAJOR DEPRESSION
     Dosage: 5 MG/DAY
  4. ARIPIPRAZOLE [Suspect]
     Indication: MAJOR DEPRESSION
     Dosage: 15MG/DAY
  5. SERTRALINE HYDROCHLORIDE [Suspect]
     Indication: MAJOR DEPRESSION
     Dosage: 100MG/DAY
  6. RISPERIDONE [Suspect]
     Indication: MAJOR DEPRESSION
     Dosage: 5MG/DAY

REACTIONS (3)
  - Drug ineffective [Unknown]
  - Depressive symptom [Recovered/Resolved]
  - Abnormal loss of weight [Unknown]
